FAERS Safety Report 5885009-3 (Version None)
Quarter: 2008Q3

REPORT INFORMATION
  Report Type: 
  Country: None (occurrence: None)
  Receive Date: 20080915
  Receipt Date: 20080915
  Transmission Date: 20090109
  Serious: Yes (Hospitalization)
  Sender: FDA-Public Use
  Company Number: None

PATIENT
  Sex: Female
  Weight: 72.3 kg

DRUGS (8)
  1. DOXORUBICIN HYDROCHLORIDE [Suspect]
     Dosage: 100 MG
  2. CYCLOPHOSPHAMIDE [Suspect]
     Dosage: 1000 MG
  3. AMBIEN [Concomitant]
  4. COLACE [Concomitant]
  5. EMEND [Concomitant]
  6. NEULASTA [Concomitant]
  7. NORVASC [Concomitant]
  8. ZOFRAN [Concomitant]

REACTIONS (1)
  - MYOCARDIAL INFARCTION [None]
